FAERS Safety Report 21270189 (Version 2)
Quarter: 2022Q3

REPORT INFORMATION
  Report Type: Report from Study
  Country: DE (occurrence: DE)
  Receive Date: 20220830
  Receipt Date: 20220916
  Transmission Date: 20221027
  Serious: Yes (Life-Threatening, Hospitalization, Other)
  Sender: FDA-Public Use
  Company Number: DE-MYLANLABS-2022M1083394

PATIENT
  Sex: Female

DRUGS (4)
  1. ETANERCEPT [Suspect]
     Active Substance: ETANERCEPT
     Indication: Rheumatoid arthritis
     Dosage: 50 MILLIGRAM, UNK
     Route: 065
     Dates: start: 201210, end: 201211
  2. METHOTREXATE SODIUM [Suspect]
     Active Substance: METHOTREXATE SODIUM
     Indication: Rheumatoid arthritis
     Dosage: 20 MILLIGRAM, UNK
     Route: 065
     Dates: start: 20121024
  3. METHOTREXATE SODIUM [Suspect]
     Active Substance: METHOTREXATE SODIUM
     Dosage: 20 MILLIGRAM, UNK
     Route: 065
     Dates: start: 20130128
  4. ETANERCEPT [Suspect]
     Active Substance: ETANERCEPT
     Indication: Rheumatoid arthritis
     Dosage: 50 MILLIGRAM, UNK
     Route: 065
     Dates: start: 202008

REACTIONS (5)
  - Anaphylactic reaction [Unknown]
  - Posterior reversible encephalopathy syndrome [Recovered/Resolved]
  - Epilepsy [Recovered/Resolved]
  - Sepsis [Unknown]
  - Rash [Unknown]

NARRATIVE: CASE EVENT DATE: 20191201
